FAERS Safety Report 15641268 (Version 5)
Quarter: 2018Q4

REPORT INFORMATION
  Report Type: Spontaneous
  Country: SE (occurrence: SE)
  Receive Date: 20181120
  Receipt Date: 20181221
  Transmission Date: 20190205
  Serious: Yes (Other)
  Sender: FDA-Public Use
  Company Number: PHHY2018SE157554

PATIENT
  Sex: Female

DRUGS (2)
  1. DUOTRAV (ALC) [Suspect]
     Active Substance: TIMOLOL MALEATE\TRAVOPROST
     Indication: INTRAOCULAR PRESSURE INCREASED
     Route: 047
  2. AZOPT [Suspect]
     Active Substance: BRINZOLAMIDE
     Indication: INTRAOCULAR PRESSURE INCREASED
     Route: 047

REACTIONS (2)
  - Face oedema [Not Recovered/Not Resolved]
  - Drug ineffective [Unknown]
